FAERS Safety Report 5303218-9 (Version None)
Quarter: 2007Q2

REPORT INFORMATION
  Report Type: 
  Country: None (occurrence: None)
  Receive Date: 20070417
  Receipt Date: 20070417
  Transmission Date: 20071010
  Serious: Yes (Death)
  Sender: FDA-Public Use
  Company Number: None

PATIENT
  Age: 68 Year
  Sex: Female
  Weight: 63.5036 kg

DRUGS (2)
  1. AMBIEN [Suspect]
     Indication: INSOMNIA
     Dosage: AMBIEN OR 1 HS ORAL 047
     Route: 048
  2. AMBIEN CR [Suspect]
     Indication: INSOMNIA
     Dosage: AMBIEN CR 1 HS ORAL 047
     Route: 048

REACTIONS (2)
  - CARDIAC ARREST [None]
  - DEPRESSED LEVEL OF CONSCIOUSNESS [None]
